FAERS Safety Report 17749184 (Version 1)
Quarter: 2020Q2

REPORT INFORMATION
  Report Type: Other
  Country: SI (occurrence: SI)
  Receive Date: 20200506
  Receipt Date: 20200506
  Transmission Date: 20200714
  Serious: Yes (Life-Threatening)
  Sender: FDA-Public Use
  Company Number: SI-DENTSPLY-2020SCDP000160

PATIENT
  Age: 36 Year
  Sex: Female

DRUGS (2)
  1. MEPIVACAINE HCL AND EPINEPHRINE [Suspect]
     Active Substance: EPINEPHRINE\MEPIVACAINE HYDROCHLORIDE
     Indication: TOOTH EXTRACTION
     Dosage: 1.5 MILLILITER, SCANDONEST 20 MG/0.01 MG IN 1 ML SOLUTION FOR INJECTION, AMPULE
     Route: 050
     Dates: start: 20191030, end: 20191030
  2. NALGESIN [NAPROXEN SODIUM] [Concomitant]
     Indication: PRODUCT USED FOR UNKNOWN INDICATION
     Dosage: UNK

REACTIONS (2)
  - Syncope [None]
  - Communication disorder [Recovered/Resolved]

NARRATIVE: CASE EVENT DATE: 20191030
